FAERS Safety Report 20186659 (Version 4)
Quarter: 2023Q4

REPORT INFORMATION
  Report Type: Spontaneous
  Country: US (occurrence: US)
  Receive Date: 20211215
  Receipt Date: 20231202
  Transmission Date: 20240110
  Serious: Yes (Other)
  Sender: FDA-Public Use
  Company Number: US-Accord-247177

PATIENT
  Age: 43 Year
  Sex: Female
  Weight: 101 kg

DRUGS (5)
  1. DOCETAXEL [Suspect]
     Active Substance: DOCETAXEL\DOCETAXEL ANHYDROUS
     Indication: Breast cancer
     Dosage: NUMBER OF CYCLES: 4?250ML NS?FREQUENCY: EVERY 3 WEEKS
     Route: 042
     Dates: start: 20190702
  2. CYTOXAN [Suspect]
     Active Substance: CYCLOPHOSPHAMIDE
     Indication: Breast cancer
     Dates: start: 20190702
  3. DOCETAXEL [Suspect]
     Active Substance: DOCETAXEL\DOCETAXEL ANHYDROUS
     Indication: Breast cancer
     Dosage: 250ML NS
     Route: 042
     Dates: start: 20190903, end: 20190903
  4. DOCETAXEL [Suspect]
     Active Substance: DOCETAXEL\DOCETAXEL ANHYDROUS
     Indication: Breast cancer
     Dosage: 250ML NS
     Route: 042
     Dates: start: 20190813
  5. DOCETAXEL [Suspect]
     Active Substance: DOCETAXEL\DOCETAXEL ANHYDROUS
     Indication: Breast cancer
     Dosage: 250ML NS
     Route: 042
     Dates: start: 20190723

REACTIONS (7)
  - Dacryostenosis acquired [Unknown]
  - Diarrhoea [Recovered/Resolved]
  - Myelosuppression [Unknown]
  - Neuropathy peripheral [Unknown]
  - Alopecia [Unknown]
  - Fatigue [Unknown]
  - Gastrointestinal disorder [Unknown]
